FAERS Safety Report 4677237-X (Version None)
Quarter: 2005Q2

REPORT INFORMATION
  Report Type: 
  Country: None (occurrence: None)
  Receive Date: 20050531
  Receipt Date: 20050524
  Transmission Date: 20051028
  Serious: Yes (Other)
  Sender: FDA-Public Use
  Company Number: PHBS2005JP07498

PATIENT
  Age: 67 Year
  Sex: Male

DRUGS (1)
  1. LAMISIL [Suspect]
     Indication: NAIL TINEA
     Dosage: 125 MG/D
     Route: 048
     Dates: start: 20050430, end: 20050519

REACTIONS (3)
  - ANASTOMOTIC ULCER [None]
  - GASTRIC HAEMORRHAGE [None]
  - MELAENA [None]
